FAERS Safety Report 9244474 (Version 1)
Quarter: 2013Q2

REPORT INFORMATION
  Report Type: Spontaneous
  Country: FR (occurrence: FR)
  Receive Date: 20130422
  Receipt Date: 20130422
  Transmission Date: 20140414
  Serious: Yes (Hospitalization)
  Sender: FDA-Public Use
  Company Number: PHHY2013FR037331

PATIENT
  Age: 61 Year
  Sex: Female

DRUGS (7)
  1. NISISCO [Suspect]
     Indication: HYPERTENSION
     Dosage: 1 DF (160MG VALS/12.5MG HCTZ) DAILY
     Route: 048
     Dates: end: 20120425
  2. DEROXAT [Suspect]
     Indication: DEPRESSION
     Dosage: 0.5 DF, DAILY
  3. SEROPLEX [Suspect]
     Indication: DEPRESSION
     Dosage: UNK UKN, UNK
     Dates: start: 20120415, end: 20120421
  4. SERESTA [Concomitant]
     Dosage: 50 MG, UNK
  5. SERESTA [Concomitant]
     Dosage: INCREASED DOSE
  6. ZOCOR [Concomitant]
     Dosage: 1 DF, DAILY
  7. STILNOX [Concomitant]
     Dosage: 1 DF (10MG), DAILY

REACTIONS (2)
  - Balance disorder [Recovered/Resolved]
  - Hyponatraemia [Recovered/Resolved]
